FAERS Safety Report 18368154 (Version 1)
Quarter: 2020Q4

REPORT INFORMATION
  Report Type: Not Available
  Country: None (occurrence: US)
  Receive Date: 20201009
  Receipt Date: 20201009
  Transmission Date: 20210114
  Serious: No
  Sender: FDA-Public Use
  Company Number: US-C B FLEET CO INC-202003-US-001064

PATIENT
  Sex: Female

DRUGS (1)
  1. MONISTAT 3 [Suspect]
     Active Substance: MICONAZOLE NITRATE
     Indication: FUNGAL INFECTION
     Dosage: WAS NOT ABLE TO FULLY INSERT
     Route: 067

REACTIONS (3)
  - Vulvovaginal pain [Recovered/Resolved]
  - Vulvovaginal burning sensation [Recovered/Resolved]
  - Condition aggravated [Not Recovered/Not Resolved]
